FAERS Safety Report 19240702 (Version 1)
Quarter: 2021Q2

REPORT INFORMATION
  Report Type: Spontaneous
  Country: NZ (occurrence: NZ)
  Receive Date: 20210511
  Receipt Date: 20210511
  Transmission Date: 20210717
  Serious: Yes (Other)
  Sender: FDA-Public Use
  Company Number: NZ-ALKEM LABORATORIES LIMITED-NZ-ALKEM-2021-02491

PATIENT
  Age: 75 Year
  Sex: Female

DRUGS (3)
  1. TRIAMCINOLONE ACETONIDE. [Suspect]
     Active Substance: TRIAMCINOLONE ACETONIDE
     Indication: BIRDSHOT CHORIORETINOPATHY
  2. MYCOPHENOLATE MOFETIL. [Suspect]
     Active Substance: MYCOPHENOLATE MOFETIL
     Indication: BIRDSHOT CHORIORETINOPATHY
     Dosage: 1 GRAM, BID
     Route: 065
  3. TRIAMCINOLONE ACETONIDE. [Suspect]
     Active Substance: TRIAMCINOLONE ACETONIDE
     Indication: CONDITION AGGRAVATED
     Dosage: 40 MILLIGRAM
     Route: 065

REACTIONS (4)
  - Eye infection toxoplasmal [Unknown]
  - Infective uveitis [Unknown]
  - Condition aggravated [Unknown]
  - Retinal detachment [Unknown]
